FAERS Safety Report 7105840-6 (Version None)
Quarter: 2010Q4

REPORT INFORMATION
  Report Type: 
  Country: None (occurrence: None)
  Receive Date: 20101116
  Receipt Date: 20101108
  Transmission Date: 20110411
  Serious: Yes (Hospitalization)
  Sender: FDA-Public Use
  Company Number: A0698892A

PATIENT
  Age: 58 Year
  Sex: Male
  Weight: 111.4 kg

DRUGS (2)
  1. AVANDIA [Suspect]
     Dosage: 4MG PER DAY
     Route: 048
     Dates: start: 20030801, end: 20050801
  2. METFORMIN [Concomitant]
     Dates: start: 20030507, end: 20041001

REACTIONS (5)
  - ANXIETY [None]
  - CARDIAC ARREST [None]
  - MYOCARDIAL INFARCTION [None]
  - PAIN [None]
  - VENTRICULAR FIBRILLATION [None]
